FAERS Safety Report 4680108-6 (Version None)
Quarter: 2005Q2

REPORT INFORMATION
  Report Type: 
  Country: None (occurrence: None)
  Receive Date: 20050602
  Receipt Date: 20050422
  Transmission Date: 20051028
  Serious: No
  Sender: FDA-Public Use
  Company Number: DE-BRISTOL-MYERS SQUIBB COMPANY-12942876

PATIENT
  Age: 69 Year
  Sex: Male
  Weight: 76 kg

DRUGS (9)
  1. PRAVASIN [Suspect]
     Indication: HYPERCHOLESTEROLAEMIA
     Dates: start: 20050215
  2. UNAT [Concomitant]
  3. ISOKET [Concomitant]
  4. PANTOPRAZOLE SODIUM [Concomitant]
  5. SOTALEX-MITE TABS 80 MG [Concomitant]
  6. DELIX [Concomitant]
  7. TROMCARDIN [Concomitant]
  8. GINKGO [Concomitant]
  9. MARCUMAR [Concomitant]

REACTIONS (1)
  - MUSCLE DISORDER [None]
